FAERS Safety Report 10197023 (Version 2)
Quarter: 2014Q2

REPORT INFORMATION
  Report Type: Spontaneous
  Country: US (occurrence: US)
  Receive Date: 20140527
  Receipt Date: 20140604
  Transmission Date: 20141212
  Serious: Yes (Life-Threatening, Hospitalization, Other)
  Sender: FDA-Public Use
  Company Number: US-ASTELLAS-2014US005769

PATIENT
  Age: 76 Year
  Sex: Male

DRUGS (1)
  1. XTANDI [Suspect]
     Indication: PRODUCT USED FOR UNKNOWN INDICATION
     Route: 048
     Dates: start: 201403, end: 201405

REACTIONS (1)
  - Malignant neoplasm progression [Not Recovered/Not Resolved]
